FAERS Safety Report 8540497-9 (Version None)
Quarter: 2012Q3

REPORT INFORMATION
  Report Type: 
  Country: None (occurrence: None)
  Receive Date: 20120726
  Receipt Date: 20110802
  Transmission Date: 20120928
  Serious: No
  Sender: FDA-Public Use
  Company Number: US-ASTRAZENECA-2011SE46415

PATIENT

DRUGS (1)
  1. SEROQUEL [Suspect]
     Dosage: 200 MG TWO AT NIGHT PLUS ONE AT NIGHT PRN
     Route: 048

REACTIONS (1)
  - CONDITION AGGRAVATED [None]
